FAERS Safety Report 21930957 (Version 1)
Quarter: 2023Q1

REPORT INFORMATION
  Report Type: Spontaneous
  Country: US (occurrence: US)
  Receive Date: 20230131
  Receipt Date: 20230131
  Transmission Date: 20230417
  Serious: No
  Sender: FDA-Public Use
  Company Number: US-ALKERMES INC.-ALK-2023-000344

PATIENT
  Sex: Female

DRUGS (1)
  1. ARISTADA [Suspect]
     Active Substance: ARIPIPRAZOLE LAUROXIL
     Indication: Product used for unknown indication
     Dosage: UNK
     Route: 030

REACTIONS (3)
  - Product administered at inappropriate site [Recovered/Resolved]
  - Injection site irritation [Not Recovered/Not Resolved]
  - Injection site discomfort [Not Recovered/Not Resolved]
